FAERS Safety Report 7730453-2 (Version None)
Quarter: 2011Q3

REPORT INFORMATION
  Report Type: 
  Country: None (occurrence: None)
  Receive Date: 20110906
  Receipt Date: 20110902
  Transmission Date: 20111222
  Serious: Yes (Other)
  Sender: FDA-Public Use
  Company Number: US-BAYER-2011-081350

PATIENT
  Age: 53 Year
  Sex: Male

DRUGS (1)
  1. LEUKINE [Suspect]
     Indication: MELANOMA RECURRENT
     Dosage: DAILY DOSE 125 ?G/M2
     Dates: start: 20110804, end: 20110805

REACTIONS (1)
  - MYOCARDIAL INFARCTION [None]
